FAERS Safety Report 5683174-4 (Version None)
Quarter: 2008Q1

REPORT INFORMATION
  Report Type: 
  Country: None (occurrence: None)
  Receive Date: 20080327
  Receipt Date: 20080317
  Transmission Date: 20080703
  Serious: Yes (Hospitalization)
  Sender: FDA-Public Use
  Company Number: FR-WYE-H03293308

PATIENT
  Age: 91 Year
  Sex: Female

DRUGS (8)
  1. CORDARONE [Suspect]
     Dosage: UNSPECIFIED
     Route: 042
     Dates: end: 20071222
  2. ARICEPT [Suspect]
     Dosage: UNSPECIFIED
     Route: 048
     Dates: end: 20071222
  3. ARICEPT [Suspect]
     Dates: start: 20071222
  4. CARDENSIEL [Concomitant]
     Dosage: UNSPECIFIED
     Route: 048
  5. IMOVANE [Concomitant]
     Dosage: UNSPECIFIED
     Route: 048
     Dates: end: 20071222
  6. TEMESTA [Concomitant]
     Route: 048
  7. ATHYMIL [Suspect]
     Dosage: UNSPECIFIED
     Route: 048
     Dates: start: 20071214, end: 20071222
  8. EQUANIL [Concomitant]
     Dosage: UNSPECIFIED
     Dates: end: 20071222

REACTIONS (2)
  - BRADYCARDIA [None]
  - SYNCOPE [None]
